FAERS Safety Report 9281630 (Version 2)
Quarter: 2013Q2

REPORT INFORMATION
  Report Type: Spontaneous
  Country: US (occurrence: US)
  Receive Date: 20130509
  Receipt Date: 20130518
  Transmission Date: 20140414
  Serious: Yes (Hospitalization, Other)
  Sender: FDA-Public Use
  Company Number: US-BAXTER-2013BAX016718

PATIENT
  Age: 72 Year
  Sex: Female

DRUGS (1)
  1. DIANEAL LOW CALCIUM [Suspect]
     Indication: PERITONEAL DIALYSIS
     Route: 033

REACTIONS (4)
  - Gastrointestinal haemorrhage [Recovering/Resolving]
  - Chronic obstructive pulmonary disease [Recovered/Resolved]
  - Haemorrhagic anaemia [Recovered/Resolved]
  - Pneumonia [Recovered/Resolved]
